FAERS Safety Report 21473053 (Version 1)
Quarter: 2022Q4

REPORT INFORMATION
  Report Type: Report from Study
  Country: GB (occurrence: GB)
  Receive Date: 20221018
  Receipt Date: 20221018
  Transmission Date: 20230113
  Serious: Yes (Hospitalization)
  Sender: FDA-Public Use
  Company Number: GB-TAKEDA-2022TUS074006

PATIENT
  Age: 17 Year
  Sex: Male

DRUGS (28)
  1. IDURSULFASE [Suspect]
     Active Substance: IDURSULFASE
     Indication: Mucopolysaccharidosis II
     Dosage: 0.41 MILLIGRAM/KILOGRAM, 1/WEEK
     Route: 042
     Dates: start: 20070815
  2. IDURSULFASE [Suspect]
     Active Substance: IDURSULFASE
     Dosage: 0.52 MILLIGRAM/KILOGRAM, 1/WEEK
     Route: 042
     Dates: start: 20180124
  3. LATANOPROST [Concomitant]
     Active Substance: LATANOPROST
     Indication: Prophylaxis
     Dosage: UNK
     Route: 065
  4. EMLA [Concomitant]
     Active Substance: LIDOCAINE\PRILOCAINE
     Indication: Procedural complication
     Dosage: UNK
     Route: 061
     Dates: start: 20070815
  5. CHLORPHENIRAMINE MALEATE [Concomitant]
     Active Substance: CHLORPHENIRAMINE MALEATE
     Indication: Hypersensitivity
     Dosage: UNK
     Route: 048
     Dates: start: 20070912, end: 20071205
  6. CHLORPHENIRAMINE MALEATE [Concomitant]
     Active Substance: CHLORPHENIRAMINE MALEATE
     Indication: Anaphylactic reaction
     Dosage: UNK
     Route: 042
     Dates: start: 20071212, end: 20080806
  7. CHLORPHENIRAMINE MALEATE [Concomitant]
     Active Substance: CHLORPHENIRAMINE MALEATE
     Indication: Premedication
  8. IBUPROFEN [Concomitant]
     Active Substance: IBUPROFEN
     Indication: Pyrexia
     Dosage: UNK
     Route: 048
     Dates: start: 20070912
  9. ACETAMINOPHEN [Concomitant]
     Active Substance: ACETAMINOPHEN
     Indication: Pain
     Dosage: UNK
     Route: 048
     Dates: start: 20070912, end: 20070912
  10. ACETAMINOPHEN [Concomitant]
     Active Substance: ACETAMINOPHEN
     Indication: Pyrexia
     Dosage: UNK
     Route: 048
     Dates: start: 20070919, end: 2009
  11. ACETAMINOPHEN [Concomitant]
     Active Substance: ACETAMINOPHEN
     Indication: Premedication
     Dosage: UNK
     Route: 048
     Dates: start: 201509
  12. ACETAMINOPHEN [Concomitant]
     Active Substance: ACETAMINOPHEN
     Indication: Arthralgia
     Dosage: UNK
     Route: 048
     Dates: start: 20170531, end: 20170531
  13. ERYTHROMYCIN [Concomitant]
     Active Substance: ERYTHROMYCIN
     Indication: Anti-infective therapy
     Dosage: UNK
     Route: 048
     Dates: start: 20070917, end: 20070922
  14. ERYTHROMYCIN [Concomitant]
     Active Substance: ERYTHROMYCIN
     Indication: Pharyngeal erythema
     Dosage: UNK
     Route: 048
     Dates: start: 20071121, end: 20071126
  15. ERYTHROMYCIN [Concomitant]
     Active Substance: ERYTHROMYCIN
     Indication: Erythema
     Dosage: UNK
     Route: 048
     Dates: start: 201212, end: 201212
  16. HYDROXYZINE [Concomitant]
     Active Substance: HYDROXYZINE HYDROCHLORIDE
     Indication: Premedication
     Dosage: UNK
     Route: 048
     Dates: start: 20070919, end: 20071205
  17. RANITIDINE [Concomitant]
     Active Substance: RANITIDINE
     Indication: Premedication
     Dosage: UNK
     Route: 048
     Dates: start: 20070926, end: 20071205
  18. RANITIDINE [Concomitant]
     Active Substance: RANITIDINE
     Dosage: UNK
     Route: 042
     Dates: start: 20071212, end: 2009
  19. CHLORAMPHENICOL [Concomitant]
     Active Substance: CHLORAMPHENICOL
     Indication: Eye infection
     Dosage: UNK
     Route: 050
     Dates: start: 20071031, end: 20071105
  20. HYDROCORTISONE [Concomitant]
     Active Substance: HYDROCORTISONE
     Indication: Hypersensitivity
     Dosage: UNK
     Route: 042
     Dates: start: 20071205, end: 20071205
  21. MELATONIN [Concomitant]
     Active Substance: MELATONIN
     Indication: Sleep disorder
     Dosage: UNK
     Route: 048
     Dates: start: 20110515
  22. ENALAPRIL [Concomitant]
     Active Substance: ENALAPRIL
     Indication: Cardiovascular disorder
     Dosage: UNK
     Route: 048
     Dates: start: 20110913, end: 20120202
  23. ENALAPRIL [Concomitant]
     Active Substance: ENALAPRIL
     Dosage: UNK
     Route: 048
     Dates: start: 20120202
  24. DESMOPRESSIN [Concomitant]
     Active Substance: DESMOPRESSIN
     Indication: Enuresis
     Dosage: UNK
     Route: 048
     Dates: start: 201503, end: 201601
  25. DICLOFENAC [Concomitant]
     Active Substance: DICLOFENAC
     Indication: Arthralgia
     Dosage: UNK
     Route: 048
     Dates: start: 201506
  26. OMEPRAZOLE [Concomitant]
     Active Substance: OMEPRAZOLE
     Indication: Gastric disorder
     Dosage: UNK
     Route: 048
     Dates: start: 201701
  27. CETIRIZINE HYDROCHLORIDE [Concomitant]
     Active Substance: CETIRIZINE HYDROCHLORIDE
     Indication: Premedication
     Dosage: UNK
     Route: 048
     Dates: start: 20170531, end: 20170531
  28. GABAPENTIN [Concomitant]
     Active Substance: GABAPENTIN
     Indication: Pain
     Dosage: UNK
     Route: 048
     Dates: start: 202108

REACTIONS (1)
  - Hip arthroplasty [Recovered/Resolved]

NARRATIVE: CASE EVENT DATE: 20220530
